FAERS Safety Report 9253950 (Version 1)
Quarter: 2013Q2

REPORT INFORMATION
  Report Type: Spontaneous
  Country: US (occurrence: None)
  Receive Date: 20130422
  Receipt Date: 20130422
  Transmission Date: 20140414
  Serious: Yes (Life-Threatening)
  Sender: FDA-Public Use
  Company Number: None

PATIENT
  Age: 62 Year
  Sex: Female
  Weight: 104.33 kg

DRUGS (1)
  1. ENOXAPARIN SODIUM [Suspect]
     Indication: CARDIAC PACEMAKER REPLACEMENT
     Dosage: 100MG  TWICE DAILY  IV?ABOUT 3 WEEKS
     Route: 042

REACTIONS (2)
  - Haematoma [None]
  - Pain [None]
